FAERS Safety Report 8365215-9 (Version None)
Quarter: 2012Q2

REPORT INFORMATION
  Report Type: 
  Country: None (occurrence: None)
  Receive Date: 20120516
  Receipt Date: 20120508
  Transmission Date: 20120825
  Serious: Yes (Hospitalization)
  Sender: FDA-Public Use
  Company Number: DK-ROCHE-1036549

PATIENT
  Sex: Female
  Weight: 58 kg

DRUGS (19)
  1. PREDNISONE TAB [Suspect]
     Indication: B-CELL LYMPHOMA
     Route: 048
     Dates: start: 20120109
  2. CYCLOPHOSPHAMIDE [Suspect]
     Indication: B-CELL LYMPHOMA
     Route: 042
     Dates: start: 20120109
  3. DOXORUBICIN/DOXORUBICIN HYDROCHLORIDE [Suspect]
     Indication: B-CELL LYMPHOMA
     Route: 042
     Dates: start: 20120109
  4. VENLAFAXINE [Concomitant]
     Indication: DEPRESSION
     Route: 048
     Dates: start: 20120105
  5. PANTOPRAZOLE [Concomitant]
     Indication: DYSPEPSIA
     Route: 048
     Dates: start: 20120105
  6. TENORETIC 100 [Concomitant]
     Indication: HYPERTENSION
     Dosage: 50+ 0.5
     Route: 048
     Dates: start: 20111218
  7. FILGRASTIM [Suspect]
     Indication: B-CELL LYMPHOMA
     Route: 058
     Dates: start: 20120110
  8. PREDNISONE TAB [Suspect]
     Dosage: DAY 7, CYCLE 2
     Route: 048
  9. CYCLOPHOSPHAMIDE [Suspect]
     Route: 042
     Dates: start: 20120213
  10. MABTHERA [Suspect]
     Indication: B-CELL LYMPHOMA
     Route: 042
     Dates: start: 20120109
  11. PREDNISONE TAB [Suspect]
     Dosage: DAY 6, CYCLE 2
     Route: 048
  12. VINCRISTINE [Suspect]
     Indication: B-CELL LYMPHOMA
     Route: 042
     Dates: start: 20120109
  13. MIRTAZAPINE [Concomitant]
     Indication: DEPRESSION
     Route: 048
     Dates: start: 20111219
  14. MABTHERA [Suspect]
     Route: 042
     Dates: start: 20120218
  15. PREDNISONE TAB [Suspect]
     Dosage: DAY 8, CYCLE 2
     Route: 048
  16. DOXORUBICIN/DOXORUBICIN HYDROCHLORIDE [Suspect]
     Route: 042
     Dates: start: 20120213
  17. SIMVASTATIN [Concomitant]
     Indication: BLOOD CHOLESTEROL
     Route: 048
     Dates: start: 20100917
  18. PREDNISONE TAB [Suspect]
     Route: 048
     Dates: start: 20120213
  19. FILGRASTIM [Suspect]
     Route: 058
     Dates: start: 20120214

REACTIONS (3)
  - DEHYDRATION [None]
  - ORAL CANDIDIASIS [None]
  - WEIGHT DECREASED [None]
